FAERS Safety Report 7234759-5 (Version None)
Quarter: 2010Q4

REPORT INFORMATION
  Report Type: 
  Country: None (occurrence: None)
  Receive Date: 20101130
  Receipt Date: 20090901
  Transmission Date: 20110411
  Serious: Yes (Hospitalization)
  Sender: FDA-Public Use
  Company Number: 2009SP023513

PATIENT
  Age: 45 Year
  Sex: Female

DRUGS (2)
  1. NUVARING [Suspect]
     Indication: CONTRACEPTION
     Dosage: VAG
     Route: 067
     Dates: start: 20060601, end: 20061201
  2. MULTI-VITAMIN [Concomitant]

REACTIONS (3)
  - DEEP VEIN THROMBOSIS [None]
  - MIGRAINE [None]
  - PULMONARY EMBOLISM [None]
